FAERS Safety Report 9559761 (Version 2)
Quarter: 2014Q1

REPORT INFORMATION
  Report Type: Spontaneous
  Country: US (occurrence: None)
  Receive Date: 20130906
  Receipt Date: 20131205
  Transmission Date: 20141002
  Serious: Yes (Hospitalization)
  Sender: FDA-Public Use
  Company Number: 163-POMAL-13073037

PATIENT
  Age: 57 Year
  Sex: Female
  Weight: 68.95 kg

DRUGS (26)
  1. POMALYST [Suspect]
     Indication: PLASMA CELL MYELOMA
     Dosage: 21 IN 21D
     Route: 048
     Dates: start: 20130705, end: 20130710
  2. ACYCLOVIR (ACICLOVIR) (ACICLOVIR) [Concomitant]
  3. COQ10 (UBIDECARENONE) [Concomitant]
  4. VITAMIN D3 (COLECALCIFEROL) [Concomitant]
  5. DILAUDID (HYDROMORPHONE HYDROCHLORIDE) [Concomitant]
  6. LISINOPRIL HCTZ (ZESTORETIC) [Concomitant]
  7. LORAZEPAM (LORAZEPAM) [Concomitant]
  8. MARINOL (DRONABINOL) [Concomitant]
  9. MARINOL (DRONABINOL) [Concomitant]
  10. MULTIVITAMINS (MULTIVITAMINS) [Concomitant]
  11. NUCYNTA [Concomitant]
  12. OXYCODONE (OXYCODONE) [Concomitant]
  13. PANTOPRAZOLE (PANTOPRAZOLE) [Concomitant]
  14. SERTRALINE (SERTRALINE) [Concomitant]
  15. SOMA [Concomitant]
  16. SOMA (CARISOPRODOL) [Concomitant]
  17. SUPER B-COMPLEX [Concomitant]
  18. TEMAZEPAM (TEMAZEPAM) [Concomitant]
  19. ZOFRAN [Concomitant]
  20. KYPROLIS (CARFILZOMIB) [Concomitant]
  21. FENTANYL (FENTANYL) [Concomitant]
  22. ASA [Concomitant]
  23. DRONABINOL [Concomitant]
  24. TIZANIDINE (TIZANIDINE) [Concomitant]
  25. TORADOL (KETOROLAC TROMETHAMINE) [Concomitant]
  26. MORPHINE [Concomitant]

REACTIONS (2)
  - Back pain [None]
  - Bone pain [None]
